FAERS Safety Report 19787129 (Version 3)
Quarter: 2021Q4

REPORT INFORMATION
  Report Type: Spontaneous
  Country: ES (occurrence: ES)
  Receive Date: 20210903
  Receipt Date: 20211224
  Transmission Date: 20220303
  Serious: Yes (Hospitalization, Other)
  Sender: FDA-Public Use
  Company Number: ES-TEVA-2021-ES-1942102

PATIENT
  Age: 37 Year
  Sex: Female

DRUGS (8)
  1. CARBOPLATIN [Suspect]
     Active Substance: CARBOPLATIN
     Indication: Ovarian cancer
     Dosage: UNK
     Dates: start: 2009
  2. CARBOPLATIN [Suspect]
     Active Substance: CARBOPLATIN
     Dosage: 395 MG, CYCLIC
     Dates: start: 2016
  3. METHYLPREDNISOLONE [Concomitant]
     Active Substance: METHYLPREDNISOLONE
     Indication: Allergy prophylaxis
     Dosage: UNK
     Dates: start: 2009
  4. CETIRIZINE [Concomitant]
     Active Substance: CETIRIZINE HYDROCHLORIDE
     Indication: Immune tolerance induction
     Dosage: UNK
     Dates: start: 2016
  5. ASPIRIN [Concomitant]
     Active Substance: ASPIRIN
     Indication: Immune tolerance induction
     Dosage: UNK
     Dates: start: 2016
  6. MONTELUKAST [Concomitant]
     Active Substance: MONTELUKAST SODIUM
     Indication: Immune tolerance induction
     Dosage: UNK
     Dates: start: 2016
  7. DEXCHLORPHENIRAMINE [Concomitant]
     Active Substance: DEXCHLORPHENIRAMINE
     Indication: Allergy prophylaxis
     Dosage: UNK
     Dates: start: 2009
  8. PREDNISOLONE [Concomitant]
     Active Substance: PREDNISOLONE
     Indication: Immune tolerance induction
     Dosage: UNK
     Dates: start: 2016

REACTIONS (6)
  - Haemolytic anaemia [Recovered/Resolved]
  - Pulmonary embolism [Unknown]
  - Malaise [Recovered/Resolved]
  - Dyspnoea [Recovered/Resolved]
  - Pyrexia [Recovered/Resolved]
  - Pruritus [Recovered/Resolved]

NARRATIVE: CASE EVENT DATE: 20090101
